FAERS Safety Report 7052720-0 (Version None)
Quarter: 2010Q4

REPORT INFORMATION
  Report Type: 
  Country: None (occurrence: None)
  Receive Date: 20101019
  Receipt Date: 20101014
  Transmission Date: 20110411
  Serious: Yes (Disabling, Other)
  Sender: FDA-Public Use
  Company Number: US-MERCK-1008USA03806

PATIENT
  Age: 61 Year
  Sex: Male
  Weight: 81 kg

DRUGS (4)
  1. COZAAR [Suspect]
     Indication: HYPERTENSION
     Route: 048
     Dates: start: 20100101, end: 20100901
  2. PROPRANOLOL HYDROCHLORIDE [Concomitant]
     Indication: HYPERTENSION
     Route: 048
  3. HYDROCHLOROTHIAZIDE [Concomitant]
     Indication: HYPERTENSION
     Route: 048
  4. HYTRIN [Concomitant]
     Indication: HYPERTENSION
     Route: 048

REACTIONS (4)
  - ACNE [None]
  - ANGIOEDEMA [None]
  - HENOCH-SCHONLEIN PURPURA [None]
  - RASH PUSTULAR [None]
